FAERS Safety Report 4757057-8 (Version None)
Quarter: 2005Q3

REPORT INFORMATION
  Report Type: 
  Country: None (occurrence: None)
  Receive Date: 20050829
  Receipt Date: 20050829
  Transmission Date: 20060218
  Serious: Yes (Disabling)
  Sender: FDA-Public Use
  Company Number: None

PATIENT
  Age: 37 Year
  Sex: Male
  Weight: 63.5036 kg

DRUGS (2)
  1. AMBIEN [Suspect]
     Dosage: QHS PO
     Route: 048
  2. LUNESTA [Suspect]
     Dosage: QHS PO
     Route: 048

REACTIONS (1)
  - AFFECTIVE DISORDER [None]
